FAERS Safety Report 16081393 (Version 2)
Quarter: 2019Q2

REPORT INFORMATION
  Report Type: Spontaneous
  Country: CA (occurrence: CA)
  Receive Date: 20190316
  Receipt Date: 20190604
  Transmission Date: 20190711
  Serious: Yes (Other)
  Sender: FDA-Public Use
  Company Number: CA-AUROBINDO-AUR-APL-2019-013761

PATIENT

DRUGS (23)
  1. ANAKINRA [Suspect]
     Active Substance: ANAKINRA
     Dosage: 200 MILLIGRAM, ONCE A DAY
     Route: 065
  2. CICLOSPORIN [Suspect]
     Active Substance: CYCLOSPORINE
     Indication: JUVENILE IDIOPATHIC ARTHRITIS
     Dosage: 80 MILLIGRAM, ONCE A DAY
     Route: 065
  3. METHOTREXATE. [Suspect]
     Active Substance: METHOTREXATE
     Indication: JUVENILE IDIOPATHIC ARTHRITIS
     Dosage: 10 MILLIGRAM, ONCE A DAY
     Route: 065
  4. INDOMETHACIN. [Suspect]
     Active Substance: INDOMETHACIN
     Indication: STILL^S DISEASE
     Dosage: 25 MILLIGRAM, UNK
     Route: 065
  5. ACTEMRA [Suspect]
     Active Substance: TOCILIZUMAB
     Indication: JUVENILE IDIOPATHIC ARTHRITIS
     Dosage: UNK
     Route: 065
  6. METHOTREXATE. [Suspect]
     Active Substance: METHOTREXATE
     Indication: IMMUNOSUPPRESSANT DRUG THERAPY
     Dosage: 20 MILLIGRAM, ONCE A DAY
     Route: 065
  7. INFLIXIMAB [Suspect]
     Active Substance: INFLIXIMAB
     Indication: JUVENILE IDIOPATHIC ARTHRITIS
     Dosage: 100 MILLIGRAM, ONCE A DAY
     Route: 065
  8. ANAKINRA [Suspect]
     Active Substance: ANAKINRA
     Indication: JUVENILE IDIOPATHIC ARTHRITIS
     Dosage: 100 MILLIGRAM, ONCE A DAY
     Route: 065
  9. KINERET [Suspect]
     Active Substance: ANAKINRA
     Dosage: 200 MILLIGRAM, ONCE A DAY
     Route: 065
  10. ENBREL [Suspect]
     Active Substance: ETANERCEPT
     Indication: JUVENILE IDIOPATHIC ARTHRITIS
     Dosage: 25 MILLIGRAM, ONCE A DAY
     Route: 065
  11. IMMUNE GLOBULIN NOS [Suspect]
     Active Substance: IMMUNE GLOBULIN NOS
     Indication: JUVENILE IDIOPATHIC ARTHRITIS
     Dosage: 20 GRAM, ONCE A DAY
     Route: 065
  12. METHOTREXATE. [Suspect]
     Active Substance: METHOTREXATE
     Dosage: 25 MILLIGRAM
     Route: 065
  13. KINERET [Suspect]
     Active Substance: ANAKINRA
     Indication: JUVENILE IDIOPATHIC ARTHRITIS
     Dosage: 100 MILLIGRAM, ONCE A DAY
     Route: 065
  14. ACTEMRA [Suspect]
     Active Substance: TOCILIZUMAB
     Indication: IMMUNOSUPPRESSANT DRUG THERAPY
     Dosage: 280 MILLIGRAM, ONCE A DAY
     Route: 065
  15. CELECOXIB. [Suspect]
     Active Substance: CELECOXIB
     Indication: JUVENILE IDIOPATHIC ARTHRITIS
     Dosage: 100 MILLIGRAM, ONCE A DAY
     Route: 048
  16. PREDNISONE. [Suspect]
     Active Substance: PREDNISONE
     Indication: STILL^S DISEASE
     Dosage: 4 MILLIGRAM, ONCE A DAY
     Route: 065
  17. PREDNISONE. [Suspect]
     Active Substance: PREDNISONE
     Dosage: 20 MILLIGRAM, ONCE A DAY
     Route: 065
  18. REMICADE [Suspect]
     Active Substance: INFLIXIMAB
     Indication: JUVENILE IDIOPATHIC ARTHRITIS
     Dosage: 100 MILLIGRAM, ONCE A DAY
     Route: 065
  19. TINZAPARIN [Suspect]
     Active Substance: TINZAPARIN
     Indication: PRODUCT USED FOR UNKNOWN INDICATION
     Dosage: 4400 DOSAGE FORM, ONCE A DAY
     Route: 065
  20. HYDROCORTISONE. [Concomitant]
     Active Substance: HYDROCORTISONE
     Indication: PRODUCT USED FOR UNKNOWN INDICATION
     Dosage: 7 MILLIGRAM, ONCE A DAY
     Route: 065
  21. ACETYLSALICYLIC ACID [Suspect]
     Active Substance: ASPIRIN
     Indication: JUVENILE IDIOPATHIC ARTHRITIS
     Dosage: 80 MILLIGRAM, ONCE A DAY
     Route: 065
  22. ANAKINRA [Suspect]
     Active Substance: ANAKINRA
     Dosage: 150 MILLIGRAM, ONCE A DAY
     Route: 065
  23. KINERET [Suspect]
     Active Substance: ANAKINRA
     Dosage: 150 MILLIGRAM, ONCE A DAY
     Route: 065

REACTIONS (3)
  - Antinuclear antibody positive [Not Recovered/Not Resolved]
  - Adrenal suppression [Not Recovered/Not Resolved]
  - Psoriasis [Not Recovered/Not Resolved]
